FAERS Safety Report 6525033-0 (Version None)
Quarter: 2009Q4

REPORT INFORMATION
  Report Type: 
  Country: None (occurrence: None)
  Receive Date: 20091231
  Receipt Date: 20091231
  Transmission Date: 20100525
  Serious: Yes (Hospitalization)
  Sender: FDA-Public Use
  Company Number: None

PATIENT
  Sex: Female
  Weight: 58.3326 kg

DRUGS (2)
  1. TAMIFLU [Suspect]
     Indication: INFLUENZA
     Dosage: 75MG DAILY PO
     Route: 048
     Dates: start: 20091013, end: 20091018
  2. RIMANTADINE 100MG ROCHE [Suspect]
     Indication: INFLUENZA
     Dosage: 100 MG DAILY PO
     Route: 048
     Dates: start: 20091013, end: 20091018

REACTIONS (1)
  - STEVENS-JOHNSON SYNDROME [None]
